FAERS Safety Report 4489940-5 (Version None)
Quarter: 2004Q4

REPORT INFORMATION
  Report Type: 
  Country: None (occurrence: None)
  Receive Date: 20041101
  Receipt Date: 20041020
  Transmission Date: 20050328
  Serious: Yes (Other)
  Sender: FDA-Public Use
  Company Number: US-GLAXOSMITHKLINE-A0530995A

PATIENT
  Age: 70 Year
  Sex: Male

DRUGS (2)
  1. SEREVENT [Suspect]
     Indication: ASTHMA
     Route: 055
  2. PRED FORTE [Suspect]
     Indication: DRUG USE FOR UNKNOWN INDICATION
     Route: 047

REACTIONS (5)
  - ABNORMAL DREAMS [None]
  - CATARACT [None]
  - DRUG INTERACTION [None]
  - DYSPNOEA [None]
  - SLEEP DISORDER [None]
